FAERS Safety Report 7095400-8 (Version None)
Quarter: 2010Q4

REPORT INFORMATION
  Report Type: 
  Country: None (occurrence: None)
  Receive Date: 20101111
  Receipt Date: 20101103
  Transmission Date: 20110411
  Serious: Yes (Hospitalization, Other)
  Sender: FDA-Public Use
  Company Number: US-US-EMD SERONO, INC.-232840J10USA

PATIENT
  Sex: Female

DRUGS (3)
  1. REBIF [Suspect]
     Indication: MULTIPLE SCLEROSIS
     Route: 058
     Dates: start: 20100111
  2. IRON SUPPLEMENTS [Concomitant]
  3. LISINOPRIL [Concomitant]

REACTIONS (15)
  - ABASIA [None]
  - ACTIVITIES OF DAILY LIVING IMPAIRED [None]
  - BACK PAIN [None]
  - BALANCE DISORDER [None]
  - BLOOD PRESSURE INCREASED [None]
  - DYSGEUSIA [None]
  - GAIT DISTURBANCE [None]
  - HEMIPARESIS [None]
  - HERNIA [None]
  - HYPOAESTHESIA FACIAL [None]
  - INFLUENZA LIKE ILLNESS [None]
  - INJECTION SITE REACTION [None]
  - MOTOR DYSFUNCTION [None]
  - POOR QUALITY SLEEP [None]
  - WEIGHT DECREASED [None]
